FAERS Safety Report 4939954-3 (Version None)
Quarter: 2006Q1

REPORT INFORMATION
  Report Type: 
  Country: None (occurrence: None)
  Receive Date: 20060310
  Receipt Date: 20060303
  Transmission Date: 20060701
  Serious: Yes (Other)
  Sender: FDA-Public Use
  Company Number: DE-GLAXOSMITHKLINE-D0048908A

PATIENT

DRUGS (1)
  1. VIANI [Suspect]
     Route: 055

REACTIONS (2)
  - EPIGLOTTIC OEDEMA [None]
  - EPIGLOTTITIS [None]
